FAERS Safety Report 9248234 (Version 1)
Quarter: 2013Q1

REPORT INFORMATION
  Report Type: Spontaneous
  Country: US (occurrence: None)
  Receive Date: 20130305
  Receipt Date: 20130305
  Transmission Date: 20140127
  Serious: Yes (Hospitalization)
  Sender: FDA-Public Use
  Company Number: 163-21880-12060680

PATIENT
  Age: 81 Year
  Sex: Female

DRUGS (8)
  1. REVLIMID [Concomitant]
     Indication: PLASMA CELL MYELOMA
     Dosage: 10 MG, QD X 21 DAYS / 7 DAYS OFF, PO
     Route: 048
     Dates: start: 20120405, end: 20120426
  2. GLOCOPHAGE (METFORMIN HYDROCHLORIDE) [Concomitant]
  3. TOPROL XL (METOPROLOL SUCCINATE) (100 MILLIGRAM) (METOPROLOL SUCCINATE) [Concomitant]
  4. DIABETA (GLIBENCLAMIDE) [Concomitant]
  5. CALCIUM / VITAMIN D (VITACAL) [Concomitant]
  6. ALENDRONATE (ALENDRONATE SODIUM) [Concomitant]
  7. ADVICOR (OTHER CHOLESTEROL AND TRIGLYCERIDE REDUCERS) [Concomitant]
  8. DEXAMETHASONE (DEXAMETHASONE) [Concomitant]

REACTIONS (3)
  - Febrile neutropenia [None]
  - Pancytopenia [None]
  - Urinary tract infection [None]
